FAERS Safety Report 4716711-4 (Version None)
Quarter: 2005Q3

REPORT INFORMATION
  Report Type: 
  Country: None (occurrence: None)
  Receive Date: 20050719
  Receipt Date: 20050308
  Transmission Date: 20060218
  Serious: Yes (Death)
  Sender: FDA-Public Use
  Company Number: US-SANOFI-SYNTHELABO-F01200500385

PATIENT
  Sex: Female
  Weight: 90 kg

DRUGS (24)
  1. OXALIPLATIN [Suspect]
     Indication: NON-SMALL CELL LUNG CANCER
     Route: 042
     Dates: start: 20050208, end: 20050208
  2. GEMCITABINE [Suspect]
     Dosage: 1000 MG/M2 ON D1 AND D8, Q3W
     Route: 042
     Dates: start: 20050215, end: 20050215
  3. ADVAIR DISKUS 100/50 [Concomitant]
     Indication: ASTHMA
     Dosage: UNK
     Route: 055
     Dates: start: 20030101
  4. ALBUTEROL [Concomitant]
     Indication: CHRONIC OBSTRUCTIVE PULMONARY DISEASE
     Route: 055
  5. ASTELIN [Concomitant]
     Route: 065
  6. FORADIL [Concomitant]
     Dosage: 12 MCG
     Route: 065
  7. THEOPHYLLINE [Concomitant]
     Indication: CHRONIC OBSTRUCTIVE PULMONARY DISEASE
     Route: 048
  8. ALLEGRA [Concomitant]
     Indication: HYPERSENSITIVITY
     Dosage: 180 MG
     Route: 048
  9. FAMOTIDINE [Concomitant]
     Indication: GASTROOESOPHAGEAL REFLUX DISEASE
     Dosage: 20 MG
     Route: 048
  10. NASONEX [Concomitant]
     Indication: HYPERSENSITIVITY
     Dosage: UNK
     Route: 045
  11. AMIODARONE HCL [Concomitant]
     Dosage: 100 MG
     Route: 048
  12. PLAVIX [Concomitant]
     Indication: ANTICOAGULANT THERAPY
     Dosage: 75 MG
     Route: 048
  13. BISOPROLOL [Concomitant]
     Indication: HYPERTENSION
     Dosage: 5 MG
     Route: 048
  14. PRAVACHOL [Concomitant]
     Indication: BLOOD CHOLESTEROL
     Dosage: 80 MG
     Route: 048
  15. ISOSORBIDE [Concomitant]
     Indication: HYPERTENSION
     Dosage: 30 MG
     Route: 048
  16. TRIAMTERENE AND HYDROCHLOROTHIAZIDE [Concomitant]
     Indication: HYPERTENSION
     Dosage: 37.5 MG/25 MG
     Route: 048
     Dates: start: 20040501
  17. CALCIUM+D [Concomitant]
     Indication: VITAMIN C
     Route: 048
  18. GLUCOSAMINE/CHONDROITIN [Concomitant]
     Indication: ARTHRITIS
     Dosage: 1500 MG/200 MG BID
     Route: 048
  19. ASPIRIN [Concomitant]
     Dosage: 81 MG
     Route: 048
  20. MOBIC [Concomitant]
     Indication: ARTHRITIS
     Dosage: 15 MG
     Route: 048
  21. FLUOCINONIDE OINTMENT [Concomitant]
     Indication: ECZEMA
     Route: 061
     Dates: start: 20040601
  22. AQUAPHOR [Concomitant]
     Indication: ECZEMA
     Route: 061
     Dates: start: 20050208
  23. TYLENOL [Concomitant]
     Indication: PAIN
     Route: 048
     Dates: start: 20050224
  24. LOMOTIL [Concomitant]
     Indication: DIARRHOEA
     Route: 048
     Dates: start: 20050224

REACTIONS (7)
  - ABDOMINAL PAIN [None]
  - ANOREXIA [None]
  - ASTHENIA [None]
  - CLOSTRIDIUM COLITIS [None]
  - DISEASE PROGRESSION [None]
  - NAUSEA [None]
  - VOMITING [None]
